FAERS Safety Report 10187237 (Version 2)
Quarter: 2014Q2

REPORT INFORMATION
  Report Type: Spontaneous
  Country: FR (occurrence: FR)
  Receive Date: 20140522
  Receipt Date: 20140617
  Transmission Date: 20141212
  Serious: Yes (Hospitalization, Other)
  Sender: FDA-Public Use
  Company Number: PHHY2014FR059911

PATIENT
  Age: 45 Year
  Sex: Female
  Weight: 55 kg

DRUGS (5)
  1. LEPONEX [Suspect]
     Indication: SCHIZOPHRENIA
     Dosage: 700 MG, (3 MORNING, 2 MIDDAY AND 2 EVENING)
     Route: 048
     Dates: end: 20140425
  2. RISPERDAL [Suspect]
     Dosage: UNK
     Dates: end: 20140512
  3. TRANXENE [Concomitant]
     Indication: ANXIETY
     Dosage: 3 DF, (1 IN MORNING, 1 IN MIDDAY AND 1 IN EVENING)
     Route: 048
  4. LIORESAL [Concomitant]
     Indication: MUSCLE SPASMS
     Dosage: 10 UKN (1 IN MORNING, 1 IN MIDDAY AND 1 IN EVENING)
     Route: 048
  5. CELLCEPT [Concomitant]
     Indication: MULTIPLE SCLEROSIS
     Dosage: 4 DF (2 IN MORNING AND 2 IN EVENING)
     Route: 048

REACTIONS (6)
  - Disorientation [Not Recovered/Not Resolved]
  - Sedation [Not Recovered/Not Resolved]
  - Stereotypy [Not Recovered/Not Resolved]
  - Drug withdrawal syndrome [Unknown]
  - Somnolence [Not Recovered/Not Resolved]
  - Confusional state [Unknown]
